FAERS Safety Report 11264088 (Version 1)
Quarter: 2015Q3

REPORT INFORMATION
  Report Type: Spontaneous
  Country: US (occurrence: None)
  Receive Date: 20150710
  Receipt Date: 20150710
  Transmission Date: 20151125
  Serious: No
  Sender: FDA-Public Use
  Company Number: None

PATIENT
  Age: 67 Year
  Sex: Female

DRUGS (1)
  1. SIMPONI [Suspect]
     Active Substance: GOLIMUMAB
     Indication: PSORIATIC ARTHROPATHY
     Dosage: 50 MG, QMONTH, SQ?
     Route: 058
     Dates: start: 20150610, end: 20150707

REACTIONS (3)
  - Urinary tract infection [None]
  - Fungal infection [None]
  - Disease recurrence [None]

NARRATIVE: CASE EVENT DATE: 20150610
